FAERS Safety Report 4405500-6 (Version None)
Quarter: 2004Q3

REPORT INFORMATION
  Report Type: 
  Country: None (occurrence: None)
  Receive Date: 20040716
  Receipt Date: 20040702
  Transmission Date: 20050211
  Serious: Yes (Other)
  Sender: FDA-Public Use
  Company Number: D01200402468

PATIENT
  Age: 68 Year
  Sex: Male
  Weight: 79 kg

DRUGS (7)
  1. ENOXAPARIN SODIUM [Suspect]
     Indication: ANGINA UNSTABLE
     Dosage: 1 MG/KG BID - SUBCUTANEOUS
     Route: 058
     Dates: start: 20040604, end: 20040609
  2. ASPIRIN [Concomitant]
  3. CAPTOPRIL [Concomitant]
  4. AMLODIPINE [Concomitant]
  5. PERINDOPRIL [Concomitant]
  6. TICLOPIDINE HCL [Concomitant]
  7. BISOPROLOL FUMARATE [Concomitant]

REACTIONS (2)
  - CARDIAC PROCEDURE COMPLICATION [None]
  - CATHETER RELATED COMPLICATION [None]
